FAERS Safety Report 8250721-8 (Version None)
Quarter: 2012Q1

REPORT INFORMATION
  Report Type: 
  Country: None (occurrence: None)
  Receive Date: 20120326
  Receipt Date: 20120315
  Transmission Date: 20120608
  Serious: Yes (Other)
  Sender: FDA-Public Use
  Company Number: 2012MA003798

PATIENT
  Age: 23 Year
  Sex: Male

DRUGS (3)
  1. VALPROIC ACID [Concomitant]
  2. GABAPENTIN [Suspect]
     Indication: NEURALGIA
     Dosage: 50 MG;QD;PO
     Route: 048
     Dates: start: 20120227, end: 20120229
  3. TRAMADOL HCL [Concomitant]

REACTIONS (1)
  - VIITH NERVE PARALYSIS [None]
